FAERS Safety Report 4595181-3 (Version None)
Quarter: 2005Q1

REPORT INFORMATION
  Report Type: 
  Country: None (occurrence: None)
  Receive Date: 20050223
  Receipt Date: 20050215
  Transmission Date: 20050727
  Serious: Yes (Life-Threatening, Hospitalization, Disabling)
  Sender: FDA-Public Use
  Company Number: 200510667BCC

PATIENT
  Age: 46 Year
  Sex: Female
  Weight: 99.7913 kg

DRUGS (4)
  1. ASPIRIN [Suspect]
  2. TNKASE [Suspect]
  3. CLOPIDOGREL BISULFATE [Suspect]
  4. ABCIXIMAB [Suspect]

REACTIONS (4)
  - BRAIN COMPRESSION [None]
  - CEREBELLAR HAEMORRHAGE [None]
  - HYDROCEPHALUS [None]
  - SUBARACHNOID HAEMORRHAGE [None]
